FAERS Safety Report 21567493 (Version 11)
Quarter: 2024Q1

REPORT INFORMATION
  Report Type: Report from Study
  Country: US (occurrence: US)
  Receive Date: 20221108
  Receipt Date: 20240316
  Transmission Date: 20240409
  Serious: Yes (Hospitalization, Other)
  Sender: FDA-Public Use
  Company Number: US-UCBSA-2022063963

PATIENT
  Age: 5 Year
  Sex: Male
  Weight: 21 kg

DRUGS (11)
  1. FINTEPLA [Suspect]
     Active Substance: FENFLURAMINE
     Indication: Seizure
     Dosage: 3 MILLILITER, 2X/DAY (BID)
     Dates: start: 20210513
  2. FINTEPLA [Suspect]
     Active Substance: FENFLURAMINE
     Indication: Severe myoclonic epilepsy of infancy
     Dosage: 3 MILLILITER, 2X/DAY (BID)
     Route: 048
     Dates: start: 202204
  3. FINTEPLA [Suspect]
     Active Substance: FENFLURAMINE
     Dosage: 3 MILLILITER, 2X/DAY (BID)
  4. FINTEPLA [Suspect]
     Active Substance: FENFLURAMINE
     Dosage: UNK
     Dates: start: 20230430
  5. FINTEPLA [Suspect]
     Active Substance: FENFLURAMINE
     Dosage: 3 MILLILITER, 2X/DAY (BID)
     Route: 048
  6. FINTEPLA [Suspect]
     Active Substance: FENFLURAMINE
     Dosage: 3 MILLILITER, 2X/DAY (BID)
     Route: 048
     Dates: start: 20230717
  7. FINTEPLA [Suspect]
     Active Substance: FENFLURAMINE
     Dosage: 3 MILLILITER, 2X/DAY (BID)
     Dates: start: 20230717
  8. FINTEPLA [Suspect]
     Active Substance: FENFLURAMINE
     Dosage: 3 MILLILITER, 2X/DAY (BID)
  9. FINTEPLA [Suspect]
     Active Substance: FENFLURAMINE
     Dosage: 2 MILLILITER, 2X/DAY (BID)
  10. FYCOMPA [Concomitant]
     Active Substance: PERAMPANEL
     Indication: Severe myoclonic epilepsy of infancy
     Dosage: 14 MILLILITER, ONCE DAILY (QD) G TUBE
     Route: 048
     Dates: start: 20230717
  11. CLOBAZAM [Concomitant]
     Active Substance: CLOBAZAM
     Indication: Severe myoclonic epilepsy of infancy
     Dosage: UNK, 2X/DAY (BID) (5 ML IN MORNING AND 8 ML IN EVENING), G-TUBE
     Route: 048
     Dates: start: 20230717

REACTIONS (9)
  - Respiratory disorder [Not Recovered/Not Resolved]
  - Pneumonia [Not Recovered/Not Resolved]
  - Illness [Not Recovered/Not Resolved]
  - Hospitalisation [Not Recovered/Not Resolved]
  - Intensive care [Not Recovered/Not Resolved]
  - Viral upper respiratory tract infection [Recovered/Resolved]
  - Expired product administered [Unknown]
  - Seizure [Not Recovered/Not Resolved]
  - Gastrostomy [Unknown]

NARRATIVE: CASE EVENT DATE: 20221019
